FAERS Safety Report 4360418-2 (Version None)
Quarter: 2004Q2

REPORT INFORMATION
  Report Type: 
  Country: None (occurrence: None)
  Receive Date: 20040514
  Receipt Date: 20040503
  Transmission Date: 20050107
  Serious: Yes (Other)
  Sender: FDA-Public Use
  Company Number: 2004029933

PATIENT
  Age: 62 Year
  Sex: Male
  Weight: 77.1115 kg

DRUGS (7)
  1. NEURONTIN [Suspect]
     Indication: CARPAL TUNNEL SYNDROME
     Dosage: (100 MG, DAILY), ORAL
     Route: 048
     Dates: start: 20040328, end: 20040418
  2. BEXTRA [Suspect]
     Indication: CARPAL TUNNEL SYNDROME
     Dosage: 20 MG (20 MG, ONCE DAILY), ORAL
     Route: 048
     Dates: start: 20040301, end: 20040301
  3. METOPROLOL TARTRATE [Concomitant]
  4. ISOSORBIDE MONONITRATE [Concomitant]
  5. FENOFIBRATE [Concomitant]
  6. EZETIMIBE (EZETIMIBE) [Concomitant]
  7. PRAVASTATIN SODIUM [Concomitant]

REACTIONS (10)
  - ASTHENIA [None]
  - DIFFICULTY IN WALKING [None]
  - DYSPHAGIA [None]
  - FEELING ABNORMAL [None]
  - GAIT DISTURBANCE [None]
  - MOBILITY DECREASED [None]
  - MUSCLE DISORDER [None]
  - NERVOUS SYSTEM DISORDER [None]
  - RASH [None]
  - SOMNOLENCE [None]
